FAERS Safety Report 6199061-1 (Version None)
Quarter: 2009Q2

REPORT INFORMATION
  Report Type: 
  Country: None (occurrence: None)
  Receive Date: 20090522
  Receipt Date: 20090514
  Transmission Date: 20091009
  Serious: Yes (Other)
  Sender: FDA-Public Use
  Company Number: US-BAYER-200920947NA

PATIENT
  Age: 38 Year
  Sex: Female
  Weight: 86 kg

DRUGS (2)
  1. YAZ [Suspect]
     Indication: ACNE
     Dosage: TOTAL DAILY DOSE: 1 DF
     Route: 048
     Dates: start: 20080601
  2. PARACETAMOL [Concomitant]

REACTIONS (4)
  - CONJUNCTIVITIS INFECTIVE [None]
  - EYE DISORDER [None]
  - EYE PAIN [None]
  - OPTIC NEURITIS [None]
